FAERS Safety Report 22008151 (Version 2)
Quarter: 2023Q1

REPORT INFORMATION
  Report Type: Spontaneous
  Country: None (occurrence: CA)
  Receive Date: 20230218
  Receipt Date: 20230224
  Transmission Date: 20230418
  Serious: Yes (Other)
  Sender: FDA-Public Use
  Company Number: CA-Ascend Therapeutics US, LLC-2138164

PATIENT
  Age: 54 Year
  Sex: Female

DRUGS (4)
  1. ESTROGEL [Suspect]
     Active Substance: ESTRADIOL
     Indication: Product used for unknown indication
     Route: 065
  2. ESTROGEL [Suspect]
     Active Substance: ESTRADIOL
  3. ESTROGEL [Suspect]
     Active Substance: ESTRADIOL
     Route: 065
  4. PROMETRIUM [Suspect]
     Active Substance: PROGESTERONE
     Route: 065

REACTIONS (4)
  - Ovarian cancer [Recovered/Resolved]
  - Malignant peritoneal neoplasm [Recovered/Resolved]
  - Ovarian cancer [Not Recovered/Not Resolved]
  - Malignant peritoneal neoplasm [Not Recovered/Not Resolved]
